FAERS Safety Report 14612162 (Version 1)
Quarter: 2018Q1

REPORT INFORMATION
  Report Type: Spontaneous
  Country: US (occurrence: US)
  Receive Date: 20180307
  Receipt Date: 20180307
  Transmission Date: 20180509
  Serious: No
  Sender: FDA-Public Use
  Company Number: None

PATIENT
  Age: 54 Day
  Sex: Male

DRUGS (2)
  1. MELOXICAM. [Suspect]
     Active Substance: MELOXICAM
  2. CLONIDINE. [Suspect]
     Active Substance: CLONIDINE
     Dates: start: 20180307

REACTIONS (2)
  - Intercepted product selection error [None]
  - Product packaging confusion [None]

NARRATIVE: CASE EVENT DATE: 20180307
